FAERS Safety Report 18730511 (Version 1)
Quarter: 2021Q1

REPORT INFORMATION
  Report Type: Not Available
  Country: DK (occurrence: DK)
  Receive Date: 20210112
  Receipt Date: 20210112
  Transmission Date: 20210419
  Serious: Yes (Life-Threatening, Hospitalization)
  Sender: FDA-Public Use
  Company Number: DK-SYNTHON BV-IN51PV21_56888

PATIENT
  Age: 87 Year
  Sex: Male

DRUGS (3)
  1. TAMSUNIC [Suspect]
     Active Substance: TAMSULOSIN
     Indication: DYSURIA
     Dosage: 0.4 MILLIGRAM
     Route: 048
     Dates: start: 20200909, end: 20200916
  2. LERCANIDIPIN HYDROCHLORID ACTAVIS [Concomitant]
     Indication: HYPERTENSION
     Dosage: 20 MILLIGRAM
     Route: 048
     Dates: start: 20140709, end: 20200916
  3. LOSARSTAD COMP [Concomitant]
     Active Substance: HYDROCHLOROTHIAZIDE\LOSARTAN POTASSIUM
     Indication: HYPERTENSION
     Dosage: 1 DOSAGE FORM
     Route: 048
     Dates: start: 20200511, end: 20200916

REACTIONS (3)
  - Pharyngeal swelling [Recovering/Resolving]
  - Angioedema [Recovering/Resolving]
  - Dyspnoea [Unknown]

NARRATIVE: CASE EVENT DATE: 20200916
